FAERS Safety Report 7182761-4 (Version None)
Quarter: 2010Q4

REPORT INFORMATION
  Report Type: 
  Country: None (occurrence: None)
  Receive Date: 20101221
  Receipt Date: 20100707
  Transmission Date: 20110411
  Serious: Yes (Other)
  Sender: FDA-Public Use
  Company Number: US-AMGEN-QUU415333

PATIENT

DRUGS (19)
  1. ENBREL [Suspect]
     Indication: PSORIASIS
     Dosage: 50 MG, QWK
     Route: 058
     Dates: start: 20030501, end: 20100302
  2. METHOTREXATE [Concomitant]
     Dosage: UNK UNK, UNK
     Dates: start: 20030501, end: 20030901
  3. RALOXIFEN HCL [Concomitant]
  4. LORATADINE [Concomitant]
  5. NABUMETONE [Concomitant]
  6. ACETYLSALICYLIC ACID [Concomitant]
  7. SIMVASTATIN [Concomitant]
  8. TOPROL-XL [Concomitant]
  9. VITAMINS [Concomitant]
  10. GARLIC [Concomitant]
  11. METOPROLOL TARTRATE [Concomitant]
  12. OSCAL [Concomitant]
  13. ASCORBIC ACID [Concomitant]
  14. DORZOLAMIDE HYDROCHLORIDE AND TIMOLOL MALEATE [Concomitant]
  15. FISH OIL [Concomitant]
  16. FOLIC ACID [Concomitant]
  17. PSYLLIUM HYDROPHILIC MUCILLOID [Concomitant]
  18. OMEPRAZOLE [Concomitant]
  19. BETAMETHASONE DIPROPIONATE [Concomitant]

REACTIONS (5)
  - LEUKOPENIA [None]
  - MACROCYTOSIS [None]
  - PANCYTOPENIA [None]
  - PSORIASIS [None]
  - SKIN INFECTION [None]
